FAERS Safety Report 7271995 (Version 4)
Quarter: 2013Q2

REPORT INFORMATION
  Report Type: Spontaneous
  Country: US (occurrence: US)
  Receive Date: 20100205
  Receipt Date: 20130509
  Transmission Date: 20140414
  Serious: Yes (Hospitalization)
  Sender: FDA-Public Use
  Company Number: US-BAYER-201012840NA

PATIENT
  Age: 39 Year
  Sex: Female
  Weight: 97.51 kg

DRUGS (28)
  1. YAZ [Suspect]
     Indication: CONTRACEPTION
     Dosage: UNK
     Route: 048
     Dates: start: 200610, end: 200702
  2. SYNTHROID [Concomitant]
     Indication: HYPOTHYROIDISM
     Dosage: UNK
     Dates: start: 20050919
  3. ASPIRIN [Concomitant]
     Indication: HEADACHE
     Dosage: UNK UNK, PRN
  4. ADVIL [Concomitant]
     Indication: HEADACHE
     Dosage: UNK UNK, PRN
  5. AVALIDE [Concomitant]
  6. CEFZIL [Concomitant]
  7. ULTRAM [Concomitant]
  8. NEXIUM [Concomitant]
  9. Q-V TUSSIN [Concomitant]
     Dosage: UNK
     Dates: start: 20070110
  10. P-V TUSSIN [Concomitant]
     Dosage: UNK
     Dates: start: 20070110
  11. PHENERGAN [Concomitant]
  12. DEMEROL [Concomitant]
  13. ROCEPHIN [Concomitant]
     Dosage: UNK
     Dates: start: 20061230
  14. LORTAB [Concomitant]
     Dosage: UNK
     Dates: start: 20061230
  15. DURAPHEN DM [Concomitant]
     Dosage: UNK
     Dates: start: 20061229
  16. ATROVENT [Concomitant]
     Dosage: UNK
     Dates: start: 20061229
  17. OMNICEF [Concomitant]
     Dosage: UNK
     Dates: start: 20061229
  18. ADDERALL [Concomitant]
     Dosage: UNK
     Dates: start: 20061212
  19. CRESTOR [Concomitant]
     Dosage: UNK
     Dates: start: 20070129
  20. ATENOLOL [Concomitant]
     Dosage: UNK
     Dates: start: 20070129
  21. HYDROCODONE W/PARACETAMOL [Concomitant]
     Dosage: UNK
     Dates: start: 20061103
  22. BUTALBITAL W/ASPIRIN,CAFFEINE [Concomitant]
     Dosage: UNK
     Dates: start: 20061117
  23. DIOVAN [Concomitant]
     Dosage: UNK
  24. LESCOL [Concomitant]
     Dosage: UNK
  25. MOBIC [Concomitant]
  26. ZYRTEC [Concomitant]
  27. RHINOCORT AQUA [Concomitant]
  28. ZOVIRAX [Concomitant]

REACTIONS (1)
  - Cerebrovascular accident [Unknown]
